FAERS Safety Report 7260226-9 (Version None)
Quarter: 2011Q1

REPORT INFORMATION
  Report Type: 
  Country: None (occurrence: None)
  Receive Date: 20110130
  Receipt Date: 20100918
  Transmission Date: 20110831
  Serious: No
  Sender: FDA-Public Use
  Company Number: US-ABBOTT-10P-163-0671904-00

PATIENT
  Age: 44 Year
  Sex: Female

DRUGS (2)
  1. APRIZO [Concomitant]
     Indication: PRODUCT USED FOR UNKNOWN INDICATION
  2. HUMIRA [Suspect]
     Indication: COLITIS
     Dates: start: 20100501

REACTIONS (5)
  - INJECTION SITE WARMTH [None]
  - INJECTION SITE ERYTHEMA [None]
  - DRY SKIN [None]
  - INJECTION SITE SWELLING [None]
  - INJECTION SITE NODULE [None]
